FAERS Safety Report 4875629-7 (Version None)
Quarter: 2006Q1

REPORT INFORMATION
  Report Type: 
  Country: None (occurrence: None)
  Receive Date: 20060105
  Receipt Date: 20051226
  Transmission Date: 20060701
  Serious: Yes (Hospitalization, Disabling)
  Sender: FDA-Public Use
  Company Number: 2005144660

PATIENT
  Age: 47 Year
  Sex: Female
  Weight: 46 kg

DRUGS (4)
  1. MEDROXYPROGESTERONE ACETATE [Suspect]
     Indication: BREAST CANCER
     Dosage: 600 MG (200 MG, 1 IN 8 HR), ORAL
     Route: 048
     Dates: start: 20050511, end: 20050622
  2. MEDROXYPROGESTERONE ACETATE [Suspect]
     Indication: BREAST CANCER
     Dosage: 600 MG (200 MG, 1 IN 8 HR), ORAL
     Route: 048
     Dates: start: 20050810, end: 20050914
  3. CYCLOPHOSPHAMIDE [Suspect]
     Indication: BREAST CANCER
     Dosage: 100 MG (50 MG, 1 IN 12 HR), ORAL
     Route: 048
     Dates: start: 20050511, end: 20050914
  4. FURTULON (DOXIFLURIDINE) [Suspect]
     Indication: BREAST CANCER
     Dosage: 600 MG (200 MG, 1 IN 3 HR), ORAL
     Route: 048
     Dates: start: 20050511, end: 20050914

REACTIONS (2)
  - LYMPHOCYTE STIMULATION TEST POSITIVE [None]
  - METASTASES TO LIVER [None]
